FAERS Safety Report 4649688-0 (Version None)
Quarter: 2005Q2

REPORT INFORMATION
  Report Type: 
  Country: None (occurrence: None)
  Receive Date: 20050502
  Receipt Date: 20050214
  Transmission Date: 20051028
  Serious: Yes (Other)
  Sender: FDA-Public Use
  Company Number: 200511196US

PATIENT
  Age: 65 Year
  Sex: Male
  Weight: 88.1 kg

DRUGS (3)
  1. KETEK [Suspect]
     Indication: SINUSITIS
     Dosage: DOSE: 400 (X 2 TABLETS)
     Route: 048
     Dates: start: 20050207, end: 20050209
  2. CODIMAL [Concomitant]
     Dosage: DOSE: UNK
     Dates: start: 20050207, end: 20050209
  3. LEVAQUIN [Concomitant]
     Dosage: DOSE: UNK
     Dates: start: 20050214

REACTIONS (9)
  - COUGH [None]
  - DISCOMFORT [None]
  - DRUG HYPERSENSITIVITY [None]
  - HYPERHIDROSIS [None]
  - HYPERTENSION [None]
  - PHARYNGITIS [None]
  - PRURITUS [None]
  - RASH ERYTHEMATOUS [None]
  - RASH MACULO-PAPULAR [None]
